FAERS Safety Report 5008804-1 (Version None)
Quarter: 2006Q2

REPORT INFORMATION
  Report Type: 
  Country: None (occurrence: None)
  Receive Date: 20060518
  Receipt Date: 20060511
  Transmission Date: 20061013
  Serious: Yes (Death, Life-Threatening, Hospitalization)
  Sender: FDA-Public Use
  Company Number: HQWYE910608DEC05

PATIENT
  Age: 63 Year
  Sex: Male

DRUGS (3)
  1. MYLOTARG [Suspect]
     Indication: ACUTE MYELOID LEUKAEMIA
     Dosage: 9 MG/M^2 1X PER 1 DAY, INTRAVENOUS DRIP
     Route: 041
     Dates: start: 20051021, end: 20051021
  2. METHOTREXATE [Suspect]
     Indication: ACUTE MYELOID LEUKAEMIA
     Dosage: 30 MG/DAY, INTRAVENOUS
     Route: 042
     Dates: start: 20051106, end: 20051106
  3. OMEGACIN (BIAPENEM, INJECTION) [Suspect]
     Dosage: 0.6 G/DAY, INTRAVENOUS DRIP
     Route: 041
     Dates: start: 20051021, end: 20051101

REACTIONS (26)
  - ACIDOSIS [None]
  - ACTIVATED PARTIAL THROMBOPLASTIN TIME PROLONGED [None]
  - ACUTE MYELOID LEUKAEMIA [None]
  - ALANINE AMINOTRANSFERASE INCREASED [None]
  - ASPARTATE AMINOTRANSFERASE INCREASED [None]
  - BLAST CELL COUNT INCREASED [None]
  - BLOOD ALKALINE PHOSPHATASE INCREASED [None]
  - BLOOD BILIRUBIN INCREASED [None]
  - BLOOD LACTATE DEHYDROGENASE INCREASED [None]
  - C-REACTIVE PROTEIN INCREASED [None]
  - DISSEMINATED INTRAVASCULAR COAGULATION [None]
  - FEBRILE NEUTROPENIA [None]
  - GAMMA-GLUTAMYLTRANSFERASE INCREASED [None]
  - HEPATOMEGALY [None]
  - HYPOALBUMINAEMIA [None]
  - HYPOKALAEMIA [None]
  - HYPOPROTEINAEMIA [None]
  - LIVER DISORDER [None]
  - LYMPHOCYTE COUNT DECREASED [None]
  - MALIGNANT NEOPLASM PROGRESSION [None]
  - NEUTROPHIL COUNT DECREASED [None]
  - PERFORMANCE STATUS DECREASED [None]
  - PLATELET COUNT DECREASED [None]
  - PULMONARY MYCOSIS [None]
  - SINUS TACHYCARDIA [None]
  - WHITE BLOOD CELL COUNT DECREASED [None]
